FAERS Safety Report 7283543-5 (Version None)
Quarter: 2011Q1

REPORT INFORMATION
  Report Type: 
  Country: None (occurrence: None)
  Receive Date: 20110209
  Receipt Date: 20110127
  Transmission Date: 20110831
  Serious: Yes (Life-Threatening, Other)
  Sender: FDA-Public Use
  Company Number: FR-PFIZER INC-2011028797

PATIENT
  Age: 81 Year
  Sex: Female

DRUGS (9)
  1. POTASSIUM CHLORIDE [Suspect]
     Dosage: 4 DF DAILY
     Route: 048
     Dates: end: 20110104
  2. LASIX [Suspect]
     Dosage: 80 MG, DAILY
     Route: 048
     Dates: end: 20110104
  3. STAGID [Suspect]
     Dosage: UNK
     Route: 048
     Dates: end: 20110104
  4. BISOPROLOL FUMARATE [Concomitant]
  5. HEMIGOXINE NATIVELLE [Concomitant]
  6. STILNOX [Suspect]
     Dosage: 1 DF, 1X/DAY
     Route: 048
     Dates: end: 20110104
  7. ZYPREXA [Suspect]
     Dosage: 1 DF, 1X/DAY
     Route: 048
     Dates: end: 20110104
  8. ATARAX [Suspect]
     Dosage: 0.5 DF, 3X/DAY
     Route: 048
     Dates: end: 20110104
  9. PREVISCAN [Suspect]
     Indication: MITRAL VALVE STENOSIS
     Dosage: 0.5 DF DAILY
     Route: 048
     Dates: end: 20110104

REACTIONS (7)
  - BRAIN OEDEMA [None]
  - SUBDURAL HAEMORRHAGE [None]
  - APATHY [None]
  - INTERNATIONAL NORMALISED RATIO INCREASED [None]
  - PSYCHOMOTOR SKILLS IMPAIRED [None]
  - CONFUSIONAL STATE [None]
  - HYPERTHERMIA [None]
